FAERS Safety Report 14927622 (Version 1)
Quarter: 2018Q2

REPORT INFORMATION
  Report Type: Spontaneous
  Country: NL (occurrence: NL)
  Receive Date: 20180523
  Receipt Date: 20180523
  Transmission Date: 20180711
  Serious: Yes (Congenital Anomaly, Other)
  Sender: FDA-Public Use
  Company Number: NL-AUROBINDO-AUR-APL-2018-026723

PATIENT
  Age: 19 Week
  Sex: Male

DRUGS (2)
  1. FOLIUMZUUR [Concomitant]
     Active Substance: FOLIC ACID
     Indication: PRODUCT USED FOR UNKNOWN INDICATION
     Dosage: UNK
     Route: 048
  2. LAMOTRIGINE DISPERSABLE TABLET [Suspect]
     Active Substance: LAMOTRIGINE
     Indication: EPILEPSY
     Dosage: 100 MILLIGRAM, TWO TIMES A DAY,(2DD 100MG)
     Route: 050

REACTIONS (1)
  - Spina bifida [Not Recovered/Not Resolved]
